FAERS Safety Report 4735243-0 (Version None)
Quarter: 2005Q3

REPORT INFORMATION
  Report Type: 
  Country: None (occurrence: None)
  Receive Date: 20050802
  Receipt Date: 20050718
  Transmission Date: 20060218
  Serious: Yes (Other)
  Sender: FDA-Public Use
  Company Number: 2005-DE-02804GD

PATIENT
  Age: 70 Year
  Sex: Male

DRUGS (3)
  1. DIGOXIN [Suspect]
  2. SIMVASTATIN [Suspect]
     Dosage: 20 MG
  3. PROPAFENONE HCL [Suspect]

REACTIONS (2)
  - ALANINE AMINOTRANSFERASE INCREASED [None]
  - DRUG INTERACTION [None]
